FAERS Safety Report 15252307 (Version 1)
Quarter: 2018Q3

REPORT INFORMATION
  Report Type: Spontaneous
  Country: US (occurrence: US)
  Receive Date: 20180717
  Receipt Date: 20180717
  Transmission Date: 20181010
  Serious: Yes (Disabling)
  Sender: FDA-Public Use
  Company Number: None

PATIENT
  Age: 65 Year
  Sex: Female
  Weight: 77.4 kg

DRUGS (1)
  1. EZETIMIBE 10 MG TAB APOT [Suspect]
     Active Substance: EZETIMIBE
     Indication: BLOOD CHOLESTEROL INCREASED
     Dosage: ?          QUANTITY:1 TABLET(S);?
     Route: 048
     Dates: start: 20170720, end: 20180710

REACTIONS (5)
  - Formication [None]
  - Pruritus [None]
  - General physical health deterioration [None]
  - Skin depigmentation [None]
  - Arthralgia [None]
